FAERS Safety Report 18495550 (Version 1)
Quarter: 2020Q4

REPORT INFORMATION
  Report Type: Spontaneous
  Country: US (occurrence: US)
  Receive Date: 20201111
  Receipt Date: 20201111
  Transmission Date: 20210114
  Serious: Yes (Life-Threatening, Hospitalization)
  Sender: FDA-Public Use
  Company Number: None

PATIENT
  Age: 85 Year
  Sex: Male

DRUGS (2)
  1. ASPIRIN (ASPIRIN 81MG TAB,EC) [Suspect]
     Active Substance: ASPIRIN
     Indication: CARDIOVASCULAR DISORDER
     Route: 048
  2. WARFARIN (WARFARIN NA (EXELAN) 2.5MG TAB) [Suspect]
     Active Substance: WARFARIN SODIUM
     Indication: ATRIAL FIBRILLATION
     Route: 048
     Dates: end: 20201012

REACTIONS (10)
  - Fall [None]
  - Hypertension [None]
  - Cerebral haemorrhage [None]
  - Tachycardia [None]
  - International normalised ratio increased [None]
  - Dry mouth [None]
  - Haemorrhage intracranial [None]
  - Drug hypersensitivity [None]
  - Asthenia [None]
  - Dehydration [None]

NARRATIVE: CASE EVENT DATE: 20201012
